FAERS Safety Report 7381372-5 (Version None)
Quarter: 2011Q1

REPORT INFORMATION
  Report Type: 
  Country: None (occurrence: None)
  Receive Date: 20110321
  Receipt Date: 20110304
  Transmission Date: 20110831
  Serious: Yes (Hospitalization, Other)
  Sender: FDA-Public Use
  Company Number: AUR-APL-2011-00969

PATIENT
  Age: 49 Year
  Sex: Male

DRUGS (1)
  1. TERBINAFINE TABLET [Suspect]
     Indication: ONYCHOMYCOSIS
     Dosage: 250 MG, DAILY, ORAL
     Route: 048
     Dates: start: 20101230, end: 20110219

REACTIONS (7)
  - JAUNDICE CHOLESTATIC [None]
  - VOMITING [None]
  - ABDOMINAL PAIN UPPER [None]
  - CHOLECYSTITIS [None]
  - CHOLESTASIS [None]
  - JAUNDICE [None]
  - PANCREATITIS [None]
